FAERS Safety Report 5858544-1 (Version None)
Quarter: 2008Q3

REPORT INFORMATION
  Report Type: 
  Country: None (occurrence: None)
  Receive Date: 20080826
  Receipt Date: 20080814
  Transmission Date: 20090109
  Serious: Yes (Death, Hospitalization)
  Sender: FDA-Public Use
  Company Number: US-SANOFI-SYNTHELABO-A03200803264

PATIENT
  Age: 68 Year
  Sex: Male

DRUGS (2)
  1. AMBIEN [Suspect]
     Indication: INSOMNIA
     Route: 048
     Dates: start: 20060201, end: 20060101
  2. AMBIEN [Suspect]
     Dosage: WAS TAKING HALF A TABLET PRN
     Route: 048
     Dates: start: 20060101

REACTIONS (6)
  - FALL [None]
  - HEAD INJURY [None]
  - INTENTIONAL DRUG MISUSE [None]
  - LOSS OF CONSCIOUSNESS [None]
  - SOMNAMBULISM [None]
  - SUBDURAL HAEMATOMA [None]
